FAERS Safety Report 22160914 (Version 1)
Quarter: 2023Q1

REPORT INFORMATION
  Report Type: Spontaneous
  Country: US (occurrence: None)
  Receive Date: 20230331
  Receipt Date: 20230331
  Transmission Date: 20230418
  Serious: Yes (Disabling)
  Sender: FDA-Public Use
  Company Number: None

PATIENT
  Age: 73 Year
  Sex: Female
  Weight: 73.35 kg

DRUGS (1)
  1. PERCOCET [Suspect]
     Active Substance: ACETAMINOPHEN\OXYCODONE HYDROCHLORIDE
     Indication: Pain management
     Dosage: OTHER QUANTITY : 1 TABLET(S);?FREQUENCY : EVERY 6 HOURS;?
     Route: 048
     Dates: start: 20221201, end: 20230328

REACTIONS (7)
  - Drug ineffective [None]
  - Irritability [None]
  - Depressed mood [None]
  - Malaise [None]
  - Product supply issue [None]
  - Product quality issue [None]
  - Product formulation issue [None]

NARRATIVE: CASE EVENT DATE: 20221201
